FAERS Safety Report 12425343 (Version 2)
Quarter: 2016Q3

REPORT INFORMATION
  Report Type: Spontaneous
  Country: JP (occurrence: JP)
  Receive Date: 20160601
  Receipt Date: 20160919
  Transmission Date: 20161109
  Serious: Yes (Death, Other)
  Sender: FDA-Public Use
  Company Number: JP-PFIZER INC-2016282337

PATIENT
  Age: 91 Year
  Sex: Male
  Weight: 49 kg

DRUGS (6)
  1. PREDNISOLONE. [Concomitant]
     Active Substance: PREDNISOLONE
     Indication: PEMPHIGOID
     Dosage: 12 MG, 1X/DAY
     Route: 048
     Dates: start: 20151221
  2. LYRICA [Suspect]
     Active Substance: PREGABALIN
     Indication: POST HERPETIC NEURALGIA
     Dosage: 75 MG, 2X/DAY
     Route: 048
  3. VALTREX [Concomitant]
     Active Substance: VALACYCLOVIR HYDROCHLORIDE
     Indication: POST HERPETIC NEURALGIA
     Dosage: 2 G, 3X/DAY
     Route: 048
  4. ALLELOCK [Concomitant]
     Active Substance: OLOPATADINE HYDROCHLORIDE
     Indication: PEMPHIGOID
     Dosage: 5 MG, 2X/DAY
     Route: 048
     Dates: start: 20151221
  5. CALONAL [Concomitant]
     Active Substance: ACETAMINOPHEN
     Indication: POST HERPETIC NEURALGIA
     Dosage: 2 G, 3X/DAY
     Route: 048
  6. PARIET [Concomitant]
     Active Substance: RABEPRAZOLE SODIUM
     Indication: PEMPHIGOID
     Dosage: 10 MG, 1X/DAY
     Route: 048
     Dates: start: 20151221

REACTIONS (21)
  - White blood cell count increased [Unknown]
  - Activated partial thromboplastin time prolonged [Unknown]
  - Glomerular filtration rate decreased [Unknown]
  - Dizziness [Unknown]
  - Alanine aminotransferase increased [Unknown]
  - Blood glucose increased [Unknown]
  - Death [Fatal]
  - Troponin T increased [Unknown]
  - Blood urea increased [Unknown]
  - PO2 decreased [Unknown]
  - Blood lactate dehydrogenase increased [Unknown]
  - Blood potassium increased [Unknown]
  - Red blood cell count decreased [Unknown]
  - Blood albumin decreased [Unknown]
  - Aspartate aminotransferase increased [Unknown]
  - Blood creatine increased [Unknown]
  - Haemoglobin decreased [Unknown]
  - Fibrin D dimer increased [Unknown]
  - PCO2 increased [Unknown]
  - Blood pH decreased [Unknown]
  - C-reactive protein increased [Unknown]

NARRATIVE: CASE EVENT DATE: 20160525
